FAERS Safety Report 24200022 (Version 5)
Quarter: 2024Q3

REPORT INFORMATION
  Report Type: Spontaneous
  Country: US (occurrence: US)
  Receive Date: 20240812
  Receipt Date: 20240926
  Transmission Date: 20241016
  Serious: Yes (Other)
  Sender: NOVARTIS
  Company Number: US-002147023-NVSC2024US160895

PATIENT
  Sex: Female
  Weight: 68.027 kg

DRUGS (15)
  1. MYFORTIC [Suspect]
     Active Substance: MYCOPHENOLATE SODIUM
     Indication: Lung transplant
     Dosage: 360 MG, BID
     Route: 048
     Dates: start: 20130804, end: 20240731
  2. MYFORTIC [Suspect]
     Active Substance: MYCOPHENOLATE SODIUM
     Dosage: 360 MG, BID
     Route: 048
     Dates: start: 2020, end: 20240731
  3. ACYCLOVIR [Concomitant]
     Active Substance: ACYCLOVIR
     Indication: Lung transplant
     Dosage: 400 MG, BID
     Route: 065
     Dates: start: 20130804
  4. ALENDRONATE [Concomitant]
     Active Substance: ALENDRONATE SODIUM
     Indication: Lung transplant
     Dosage: 70 MG, QW
     Route: 065
     Dates: start: 20130804, end: 20240731
  5. PANCREASE MT [Concomitant]
     Active Substance: PANCRELIPASE
     Indication: Cystic fibrosis
     Dosage: UNK, QD (5 CAPSULE WITH MEALS)
     Route: 065
     Dates: start: 20130804
  6. AZITHROMYCIN [Concomitant]
     Active Substance: AZITHROMYCIN
     Indication: Lung transplant
     Dosage: 250 MG (THREE TIMES A WEEK)
     Route: 065
     Dates: start: 20130804, end: 20240731
  7. FEXOFENADINE [Concomitant]
     Active Substance: FEXOFENADINE HYDROCHLORIDE
     Indication: Hypersensitivity
     Dosage: 180 MG, QD
     Route: 065
     Dates: start: 20130804, end: 20240802
  8. LABETALOL [Concomitant]
     Active Substance: LABETALOL\LABETALOL HYDROCHLORIDE
     Indication: Lung transplant
     Dosage: 200 MG, BID
     Route: 065
     Dates: start: 20130804
  9. MONTELUKAST [Concomitant]
     Active Substance: MONTELUKAST SODIUM
     Indication: Lung transplant
     Dosage: 10 MG, QD
     Route: 065
     Dates: start: 20130804, end: 20240731
  10. PRILOSEC [Concomitant]
     Active Substance: OMEPRAZOLE MAGNESIUM
     Indication: Lung transplant
     Dosage: 40 MG, QD
     Route: 065
     Dates: start: 20130804
  11. POSACONAZOLE [Concomitant]
     Active Substance: POSACONAZOLE
     Indication: Lung transplant
     Dosage: 400 MG, QD
     Route: 065
     Dates: start: 20130804, end: 20240802
  12. BACTRIM [Concomitant]
     Active Substance: SULFAMETHOXAZOLE\TRIMETHOPRIM
     Indication: Lung transplant
     Dosage: UNK (1 TAB, 3 TIMES A WEEK)
     Route: 065
     Dates: start: 20130804, end: 20240731
  13. TACROLIMUS [Concomitant]
     Active Substance: TACROLIMUS
     Indication: Lung transplant
     Dosage: 0.5 MG, BID
     Route: 065
     Dates: start: 20130804
  14. DAPSONE [Concomitant]
     Active Substance: DAPSONE
     Indication: Lung transplant
     Dosage: 100 MG, QD
     Route: 065
     Dates: start: 20240801
  15. PREDNISONE [Concomitant]
     Active Substance: PREDNISONE
     Indication: Lung transplant
     Dosage: 5 MG, QD
     Route: 065
     Dates: start: 20130804

REACTIONS (4)
  - Abortion spontaneous [Unknown]
  - Anembryonic gestation [Unknown]
  - Maternal exposure during pregnancy [Unknown]
  - Infection [Unknown]
